FAERS Safety Report 24841701 (Version 2)
Quarter: 2025Q1

REPORT INFORMATION
  Report Type: Report from Study
  Country: US (occurrence: US)
  Receive Date: 20250114
  Receipt Date: 20250320
  Transmission Date: 20250408
  Serious: No
  Sender: MERZ
  Company Number: US-MERZ PHARMACEUTICALS, LLC-ACO_176204_2025

PATIENT
  Age: 83 Year
  Sex: Female

DRUGS (3)
  1. INBRIJA [Suspect]
     Active Substance: LEVODOPA
     Indication: Product used for unknown indication
     Dates: start: 20241227
  2. CARBIDOPA\LEVODOPA [Suspect]
     Active Substance: CARBIDOPA\LEVODOPA
     Indication: Product used for unknown indication
     Dosage: 25/100 MILLIGRAM, BID
     Route: 065
  3. CARBIDOPA\LEVODOPA [Suspect]
     Active Substance: CARBIDOPA\LEVODOPA
     Dosage: ER, 25/100 MILLIGRAM, BID
     Route: 065

REACTIONS (14)
  - Dyspepsia [Not Recovered/Not Resolved]
  - Expulsion of medication [Unknown]
  - Product communication issue [Unknown]
  - Wrong technique in device usage process [Unknown]
  - Product residue present [Unknown]
  - Device occlusion [Unknown]
  - Device issue [Unknown]
  - Skin tightness [Recovered/Resolved]
  - Pain [Recovered/Resolved]
  - Choking sensation [Not Recovered/Not Resolved]
  - Cough [Unknown]
  - Insomnia [Unknown]
  - Nasal discharge discolouration [Unknown]
  - Productive cough [Unknown]

NARRATIVE: CASE EVENT DATE: 20250101
